FAERS Safety Report 19909825 (Version 1)
Quarter: 2021Q4

REPORT INFORMATION
  Report Type: Report from Study
  Country: CN (occurrence: CN)
  Receive Date: 20211003
  Receipt Date: 20211003
  Transmission Date: 20220303
  Serious: Yes (Other)
  Sender: FDA-Public Use
  Company Number: CN-NOVARTISPH-NVSC2021CN222016

PATIENT
  Age: 60 Year
  Sex: Female

DRUGS (2)
  1. LESCOL [Suspect]
     Active Substance: FLUVASTATIN SODIUM
     Indication: Product used for unknown indication
     Dosage: UNK
     Route: 065
  2. PRALUENT [Concomitant]
     Active Substance: ALIROCUMAB

REACTIONS (4)
  - Myocardial infarction [Unknown]
  - Transient ischaemic attack [Unknown]
  - Cerebrovascular accident [Unknown]
  - Product dose omission issue [Unknown]
